FAERS Safety Report 10551050 (Version 1)
Quarter: 2014Q4

REPORT INFORMATION
  Report Type: Spontaneous
  Country: US (occurrence: None)
  Receive Date: 20141028
  Receipt Date: 20141028
  Transmission Date: 20150529
  Serious: Yes (Life-Threatening, Hospitalization)
  Sender: FDA-Public Use
  Company Number: None

PATIENT
  Age: 50 Year
  Sex: Female
  Weight: 145 kg

DRUGS (9)
  1. DALVANCE [Suspect]
     Active Substance: DALBAVANCIN
     Indication: ABDOMINAL WALL INFECTION
     Route: 042
     Dates: start: 20141002, end: 20141002
  2. SUMATRIPTAN. [Concomitant]
     Active Substance: SUMATRIPTAN
  3. DALVANCE [Suspect]
     Active Substance: DALBAVANCIN
     Indication: CELLULITIS
     Route: 042
     Dates: start: 20141002, end: 20141002
  4. NAPROXEN. [Concomitant]
     Active Substance: NAPROXEN
  5. FAMOTIDINE. [Concomitant]
     Active Substance: FAMOTIDINE
  6. NORCO [Concomitant]
     Active Substance: ACETAMINOPHEN\HYDROCODONE BITARTRATE
  7. ISOSORBIDE MONONITRATE. [Concomitant]
     Active Substance: ISOSORBIDE MONONITRATE
  8. CLOPIDOGREL [Concomitant]
     Active Substance: CLOPIDOGREL BISULFATE
  9. LOSARTAN AND HYDROCHLOROTHIAZIDE [Concomitant]
     Active Substance: HYDROCHLOROTHIAZIDE\LOSARTAN POTASSIUM

REACTIONS (4)
  - Angioedema [None]
  - Erythema [None]
  - Mouth swelling [None]
  - Pruritus [None]

NARRATIVE: CASE EVENT DATE: 20141003
